FAERS Safety Report 22897280 (Version 3)
Quarter: 2024Q4

REPORT INFORMATION
  Report Type: Spontaneous
  Country: DE (occurrence: DE)
  Receive Date: 20230902
  Receipt Date: 20241010
  Transmission Date: 20250115
  Serious: Yes (Life-Threatening, Hospitalization, Other)
  Sender: AMGEN
  Company Number: DE-AMGEN-DEUSP2023153102

PATIENT
  Age: 6 Year
  Sex: Male

DRUGS (11)
  1. BLINATUMOMAB [Suspect]
     Active Substance: BLINATUMOMAB
     Indication: Acute lymphocytic leukaemia refractory
     Dosage: 25 MICROGRAM (25UG/48H) (PAUSED FOR 3 H)
     Route: 065
     Dates: start: 20230814, end: 20230814
  2. BLINATUMOMAB [Suspect]
     Active Substance: BLINATUMOMAB
     Dosage: UNK (PAUSED FOR 3 HOURS)
     Route: 065
     Dates: start: 20230814, end: 20230815
  3. BLINATUMOMAB [Suspect]
     Active Substance: BLINATUMOMAB
     Dosage: UNK RESTARED AT AROUND 16:00
     Route: 065
     Dates: start: 20230815, end: 202308
  4. BLINATUMOMAB [Suspect]
     Active Substance: BLINATUMOMAB
     Dosage: 4.25 MICROGRAM, QD
     Route: 065
     Dates: start: 202308
  5. INOTUZUMAB OZOGAMICIN [Suspect]
     Active Substance: INOTUZUMAB OZOGAMICIN
     Indication: Acute lymphocytic leukaemia refractory
     Dosage: 0.4 MILLIGRAM
     Route: 042
     Dates: start: 20230503
  6. METHOTREXATE SODIUM [Suspect]
     Active Substance: METHOTREXATE SODIUM
     Indication: Acute lymphocytic leukaemia refractory
     Dosage: 12 MILLIGRAM
     Route: 029
     Dates: start: 20230504
  7. PREDNISOLONE [Suspect]
     Active Substance: PREDNISOLONE
     Indication: Acute lymphocytic leukaemia refractory
     Dosage: 12 MILLIGRAM
     Route: 029
     Dates: start: 20230504
  8. METHYLPREDNISOLONE [Suspect]
     Active Substance: METHYLPREDNISOLONE
     Indication: Acute lymphocytic leukaemia refractory
     Dosage: 20 MILLIGRAM
     Route: 042
     Dates: start: 20230503, end: 20230719
  9. CYTARABINE [Suspect]
     Active Substance: CYTARABINE
     Indication: Acute lymphocytic leukaemia refractory
     Dosage: 24 MILLIGRAM
     Route: 029
     Dates: start: 20230504
  10. COTRIM [Concomitant]
     Active Substance: SULFAMETHOXAZOLE\TRIMETHOPRIM
     Indication: Antifungal prophylaxis
     Route: 048
  11. VITAMIN D3 [Concomitant]
     Active Substance: CHOLECALCIFEROL
     Indication: Vitamin supplementation
     Dosage: UNK
     Route: 048

REACTIONS (2)
  - Immune effector cell-associated neurotoxicity syndrome [Recovered/Resolved]
  - Cytokine release syndrome [Recovered/Resolved]

NARRATIVE: CASE EVENT DATE: 20230814
